FAERS Safety Report 4496726-4 (Version None)
Quarter: 2004Q4

REPORT INFORMATION
  Report Type: 
  Country: None (occurrence: None)
  Receive Date: 20041109
  Receipt Date: 20041011
  Transmission Date: 20050328
  Serious: Yes (Other)
  Sender: FDA-Public Use
  Company Number: AT-MERCK-0410AUT00021

PATIENT
  Age: 73 Year
  Sex: Male

DRUGS (2)
  1. VIOXX [Suspect]
     Indication: MUSCULOSKELETAL PAIN
     Route: 048
     Dates: start: 20010101, end: 20041001
  2. VIOXX [Suspect]
     Indication: RHEUMATOID ARTHRITIS
     Route: 048
     Dates: start: 20010101, end: 20041001

REACTIONS (1)
  - CEREBROVASCULAR ACCIDENT [None]
